FAERS Safety Report 9580166 (Version 2)
Quarter: 2013Q4

REPORT INFORMATION
  Report Type: Spontaneous
  Country: DE (occurrence: DE)
  Receive Date: 20131002
  Receipt Date: 20131029
  Transmission Date: 20140711
  Serious: Yes (Life-Threatening, Other)
  Sender: FDA-Public Use
  Company Number: DE-BRISTOL-MYERS SQUIBB COMPANY-19416361

PATIENT
  Age: 77 Year
  Sex: Male
  Weight: 84 kg

DRUGS (1)
  1. ELIQUIS [Suspect]
     Indication: ATRIAL FIBRILLATION
     Dosage: 90MG
     Route: 048
     Dates: start: 20130712, end: 20130729

REACTIONS (4)
  - Renal failure acute [Unknown]
  - Gastrointestinal haemorrhage [Unknown]
  - Haemoglobin decreased [Unknown]
  - Vertigo [Unknown]
